FAERS Safety Report 8132983-0 (Version None)
Quarter: 2012Q1

REPORT INFORMATION
  Report Type: 
  Country: None (occurrence: None)
  Receive Date: 20120213
  Receipt Date: 20120104
  Transmission Date: 20120608
  Serious: Yes (Death)
  Sender: FDA-Public Use
  Company Number: US-COVIDIEN/TYCO HEALTHCARE/MALLINCKRODT-T201200207

PATIENT
  Age: 35 Year
  Sex: Male

DRUGS (8)
  1. PROPOXYPHENE HYDROCHLORIDE [Suspect]
  2. OXYCODONE HCL [Suspect]
     Dosage: UNK
  3. HYDROCODONE [Suspect]
  4. DIAZEPAM [Suspect]
  5. DIPHENHYDRAMINE HCL [Suspect]
  6. ACETAMINOPHEN [Suspect]
  7. CLORAZEPATE DIPOTASSIUM [Suspect]
  8. ETHANOL [Suspect]

REACTIONS (2)
  - CARDIO-RESPIRATORY ARREST [None]
  - COMPLETED SUICIDE [None]
